FAERS Safety Report 15632620 (Version 1)
Quarter: 2018Q4

REPORT INFORMATION
  Report Type: Report from Study
  Country: None (occurrence: US)
  Receive Date: 20181119
  Receipt Date: 20181119
  Transmission Date: 20190205
  Serious: Yes (Hospitalization)
  Sender: FDA-Public Use
  Company Number: US-JIANGSU HENGRUI MEDICINE CO., LTD.-2059008

PATIENT
  Age: 20 Year
  Sex: Female

DRUGS (13)
  1. INOTUZUMAB OZOGAMICIN [Concomitant]
     Active Substance: INOTUZUMAB OZOGAMICIN
  2. VALTREX [Concomitant]
     Active Substance: VALACYCLOVIR HYDROCHLORIDE
  3. CAFFEINE. [Concomitant]
     Active Substance: CAFFEINE
  4. VINCRISTINE SULFATE. [Concomitant]
     Active Substance: VINCRISTINE SULFATE
  5. PEGFILGRASTIM [Concomitant]
     Active Substance: PEGFILGRASTIM
  6. KEPPRA [Concomitant]
     Active Substance: LEVETIRACETAM
  7. METHOTREXATE SODIUM. [Concomitant]
     Active Substance: METHOTREXATE SODIUM
  8. GABAPENTIN. [Concomitant]
     Active Substance: GABAPENTIN
  9. CYTARABINE. [Concomitant]
     Active Substance: CYTARABINE
  10. OFATUMUMAB [Concomitant]
     Active Substance: OFATUMUMAB
  11. CYCLOPHOSPHAMIDE FOR INJECTION USP, 500 MG, 1 G AND 2 G PER SINGLE-DOS [Suspect]
     Active Substance: CYCLOPHOSPHAMIDE
     Indication: ACUTE LEUKAEMIA
     Dates: start: 20180614, end: 20180802
  12. MESNA. [Concomitant]
     Active Substance: MESNA
  13. ACTIGALL [Concomitant]
     Active Substance: URSODIOL

REACTIONS (5)
  - Muscular weakness [None]
  - Fall [None]
  - Pain in extremity [None]
  - Hypoaesthesia [None]
  - Paraesthesia [None]
